FAERS Safety Report 10412021 (Version 1)
Quarter: 2014Q2

REPORT INFORMATION
  Report Type: Spontaneous
  Country: US (occurrence: None)
  Receive Date: 20140604
  Receipt Date: 20140604
  Transmission Date: 20141212
  Serious: Yes (Hospitalization)
  Sender: FDA-Public Use
  Company Number: 20130924CINRY5050

PATIENT
  Age: 49 Year
  Sex: Female

DRUGS (3)
  1. CINRYZE [Suspect]
     Indication: HEREDITARY ANGIOEDEMA
     Dosage: 1000 UNIT, 1 IN 4 D
     Route: 042
     Dates: start: 20130325, end: 201309
  2. CINRYZE [Suspect]
     Indication: HEREDITARY ANGIOEDEMA
     Dosage: 1000 UNIT, 1 IN 4 D
     Route: 042
     Dates: start: 20130325, end: 201309
  3. CINRYZE [Suspect]
     Indication: PROPHYLAXIS
     Dosage: 1000 UNIT, 1 IN 4 D
     Route: 042
     Dates: start: 20130325, end: 201309

REACTIONS (5)
  - Tooth extraction [None]
  - Swelling face [None]
  - Therapy change [None]
  - Therapy change [None]
  - Hereditary angioedema [None]
